FAERS Safety Report 4445079-6 (Version None)
Quarter: 2004Q3

REPORT INFORMATION
  Report Type: 
  Country: None (occurrence: None)
  Receive Date: 20040908
  Receipt Date: 20040908
  Transmission Date: 20050211
  Serious: No
  Sender: FDA-Public Use
  Company Number: None

PATIENT
  Sex: Male

DRUGS (1)
  1. DEFEROXAMINE 2 GM HOSPIRA [Suspect]
     Indication: HAEMOSIDEROSIS
     Dosage: 2500 MG 5 OF 7 DAYS WK SQ
     Route: 058
     Dates: start: 20040515, end: 20040608

REACTIONS (3)
  - INJECTION SITE HAEMORRHAGE [None]
  - INJECTION SITE INDURATION [None]
  - PHARMACEUTICAL PRODUCT COMPLAINT [None]
